FAERS Safety Report 4347715-1 (Version None)
Quarter: 2004Q2

REPORT INFORMATION
  Report Type: 
  Country: None (occurrence: None)
  Receive Date: 20040427
  Receipt Date: 20040421
  Transmission Date: 20050107
  Serious: Yes (Other)
  Sender: FDA-Public Use
  Company Number: US-BRISTOL-MYERS SQUIBB COMPANY-12566055

PATIENT
  Age: 34 Year
  Sex: Male

DRUGS (3)
  1. SINEMET [Suspect]
  2. REQUIP [Suspect]
  3. MIRAPEX [Suspect]
     Indication: PARKINSON'S DISEASE
     Dates: end: 20020601

REACTIONS (4)
  - COMPULSIONS [None]
  - INSOMNIA [None]
  - OBSESSIVE-COMPULSIVE DISORDER [None]
  - PATHOLOGICAL GAMBLING [None]
